FAERS Safety Report 6444659-6 (Version None)
Quarter: 2009Q4

REPORT INFORMATION
  Report Type: 
  Country: None (occurrence: None)
  Receive Date: 20091110
  Receipt Date: 20090811
  Transmission Date: 20100525
  Serious: No
  Sender: FDA-Public Use
  Company Number: 1000008143

PATIENT
  Age: 62 Year
  Sex: Female

DRUGS (2)
  1. SAVELLA [Suspect]
     Indication: FIBROMYALGIA
     Dosage: 100 MG (50 MG, 2 IN 1 D), ORAL
     Route: 048
     Dates: start: 20090513, end: 20090722
  2. ELMIRON [Concomitant]

REACTIONS (4)
  - BACK PAIN [None]
  - HALLUCINATION [None]
  - RASH [None]
  - RENAL PAIN [None]
